FAERS Safety Report 8130508-7 (Version None)
Quarter: 2012Q1

REPORT INFORMATION
  Report Type: 
  Country: None (occurrence: None)
  Receive Date: 20120210
  Receipt Date: 20120206
  Transmission Date: 20120608
  Serious: Yes (Other)
  Sender: FDA-Public Use
  Company Number: US-ASTRAZENECA-2012SE08245

PATIENT
  Age: 75 Year
  Sex: Male

DRUGS (1)
  1. VANDETANIB [Suspect]
     Route: 048

REACTIONS (2)
  - THYROID CANCER [None]
  - NEOPLASM MALIGNANT [None]
